FAERS Safety Report 21475905 (Version 1)
Quarter: 2022Q4

REPORT INFORMATION
  Report Type: Spontaneous
  Country: CH (occurrence: CH)
  Receive Date: 20221019
  Receipt Date: 20221019
  Transmission Date: 20230113
  Serious: Yes (Other)
  Sender: FDA-Public Use
  Company Number: CH-NOVARTISPH-NVSC2022CH232768

PATIENT
  Age: 35 Year
  Sex: Male

DRUGS (1)
  1. GILENYA [Suspect]
     Active Substance: FINGOLIMOD HYDROCHLORIDE
     Indication: Product used for unknown indication
     Dosage: UNK
     Route: 065
     Dates: start: 201610, end: 202109

REACTIONS (6)
  - Erectile dysfunction [Unknown]
  - Disease progression [Unknown]
  - Gait disturbance [Unknown]
  - Sensory disturbance [Unknown]
  - Visual impairment [Unknown]
  - Molluscum contagiosum [Unknown]

NARRATIVE: CASE EVENT DATE: 20170301
